FAERS Safety Report 18054301 (Version 1)
Quarter: 2020Q3

REPORT INFORMATION
  Report Type: Spontaneous
  Country: US (occurrence: US)
  Receive Date: 20200722
  Receipt Date: 20200722
  Transmission Date: 20201103
  Serious: Yes (Hospitalization)
  Sender: FDA-Public Use
  Company Number: US-AMNEAL PHARMACEUTICALS-2020-AMRX-01991

PATIENT
  Age: 61 Year
  Sex: Female

DRUGS (9)
  1. TERBUTALINE SULFATE. [Suspect]
     Active Substance: TERBUTALINE SULFATE
     Dosage: 5 MILLIGRAM, EVERY 8HR
     Route: 048
  2. ADRENACLICK [Suspect]
     Active Substance: EPINEPHRINE
     Indication: CARDIOGENIC SHOCK
     Dosage: 0.05 MICROGRAM/KILOGRAM, EVERY MIN INFUSION
     Route: 065
  3. FENTANYL. [Concomitant]
     Active Substance: FENTANYL
     Indication: PAIN
     Dosage: 20?75 MCG/KG/HR
     Route: 041
  4. TERBUTALINE SULFATE. [Suspect]
     Active Substance: TERBUTALINE SULFATE
     Indication: HAEMODYNAMIC INSTABILITY
     Dosage: 2.5 MILLIGRAM, EVERY 8HR
     Route: 048
  5. DOBUTAMINE [Suspect]
     Active Substance: DOBUTAMINE HYDROCHLORIDE
     Indication: CARDIOMYOPATHY
     Dosage: UNK UNK, DOSE INCREASED
     Route: 065
  6. MILRINONE [Suspect]
     Active Substance: MILRINONE
     Indication: CARDIOMYOPATHY
     Dosage: 0.4 MICROGRAM/KILOGRAM, EVERY MIN  INFUSION
     Route: 065
  7. PROPOFOL. [Concomitant]
     Active Substance: PROPOFOL
     Indication: SEDATIVE THERAPY
     Dosage: 20?50 MCG/KG/MIN
     Route: 065
  8. DOBUTAMINE [Suspect]
     Active Substance: DOBUTAMINE HYDROCHLORIDE
     Indication: CARDIOGENIC SHOCK
     Dosage: 6 MICROGRAM/KILOGRAM, EVERY MIN INFUSION
     Route: 065
  9. MILRINONE [Suspect]
     Active Substance: MILRINONE
     Indication: CARDIOGENIC SHOCK
     Dosage: 0.2 MICROGRAM/KILOGRAM, EVERY MIN INFUSION
     Route: 065

REACTIONS (2)
  - Drug interaction [Recovered/Resolved]
  - Serotonin syndrome [Recovered/Resolved]
